FAERS Safety Report 6161800-3 (Version None)
Quarter: 2009Q2

REPORT INFORMATION
  Report Type: 
  Country: None (occurrence: None)
  Receive Date: 20090421
  Receipt Date: 20090416
  Transmission Date: 20091009
  Serious: Yes (Hospitalization)
  Sender: FDA-Public Use
  Company Number: CN-ROCHE-627793

PATIENT
  Age: 4 Year

DRUGS (2)
  1. ROCEPHIN [Suspect]
     Indication: INFECTION PROPHYLAXIS
     Route: 042
  2. ROCEPHIN [Suspect]
     Dosage: FOR AN UNKNOWN INDICATION.
     Route: 042

REACTIONS (3)
  - CYTOMEGALOVIRUS INFECTION [None]
  - EPSTEIN-BARR VIRUS INFECTION [None]
  - HYPERSENSITIVITY [None]
